FAERS Safety Report 5167689-3 (Version None)
Quarter: 2006Q4

REPORT INFORMATION
  Report Type: 
  Country: None (occurrence: None)
  Receive Date: 20061201
  Receipt Date: 20061201
  Transmission Date: 20070319
  Serious: No
  Sender: FDA-Public Use
  Company Number: None

PATIENT
  Age: 65 Year
  Sex: Female
  Weight: 90.7194 kg

DRUGS (1)
  1. BYETTA [Suspect]
     Indication: DIABETES MELLITUS NON-INSULIN-DEPENDENT
     Dosage: 5MG ONCE DAILY IM
     Route: 030
     Dates: start: 20060917, end: 20061017

REACTIONS (6)
  - DRUG INEFFECTIVE [None]
  - DRUG TOXICITY [None]
  - INSOMNIA [None]
  - MUSCLE SPASMS [None]
  - NERVE COMPRESSION [None]
  - PAIN IN EXTREMITY [None]
